FAERS Safety Report 24010497 (Version 1)
Quarter: 2024Q2

REPORT INFORMATION
  Report Type: Spontaneous
  Country: US (occurrence: None)
  Receive Date: 20240625
  Receipt Date: 20240625
  Transmission Date: 20240715
  Serious: Yes (Hospitalization)
  Sender: FDA-Public Use
  Company Number: None

PATIENT
  Age: 32 Year
  Sex: Male
  Weight: 68 kg

DRUGS (6)
  1. CYCLOPHOSPHAMIDE [Suspect]
     Active Substance: CYCLOPHOSPHAMIDE
     Dates: end: 20240516
  2. SPRYCEL [Suspect]
     Active Substance: DASATINIB
     Dates: end: 20240613
  3. DOXORUBICIN HYDROCHLORIDE [Suspect]
     Active Substance: DOXORUBICIN HYDROCHLORIDE
     Dates: end: 20240516
  4. MESNA [Suspect]
     Active Substance: MESNA
     Dates: end: 20240515
  5. METHOTREXATE [Suspect]
     Active Substance: METHOTREXATE
     Dates: end: 20240605
  6. VINCRISTINE SULFATE [Suspect]
     Active Substance: VINCRISTINE SULFATE
     Dates: end: 20240524

REACTIONS (6)
  - Febrile neutropenia [None]
  - Tachycardia [None]
  - Diarrhoea [None]
  - Malaise [None]
  - Anaemia [None]
  - Plateletcrit decreased [None]

NARRATIVE: CASE EVENT DATE: 20240614
